FAERS Safety Report 11311435 (Version 1)
Quarter: 2015Q3

REPORT INFORMATION
  Report Type: Spontaneous
  Country: BR (occurrence: None)
  Receive Date: 20150723
  Receipt Date: 20150723
  Transmission Date: 20151125
  Serious: Yes (Other)
  Sender: FDA-Public Use
  Company Number: 2015JUB00219

PATIENT
  Age: 49 Year
  Sex: Female

DRUGS (1)
  1. ALENDRONATE (ALENDRONATE) UNKNOWN [Suspect]
     Active Substance: ALENDRONATE SODIUM
     Indication: OSTEOPOROSIS
     Route: 048

REACTIONS (3)
  - Jaw fracture [None]
  - Osteolysis [None]
  - Impaired healing [None]
